FAERS Safety Report 6738989-8 (Version None)
Quarter: 2010Q2

REPORT INFORMATION
  Report Type: 
  Country: None (occurrence: None)
  Receive Date: 20100524
  Receipt Date: 20100524
  Transmission Date: 20101027
  Serious: No
  Sender: FDA-Public Use
  Company Number: None

PATIENT
  Age: 81 Year
  Sex: Male
  Weight: 63.5 kg

DRUGS (2)
  1. RITUXIMAB [Suspect]
     Indication: GAMMOPATHY
     Dosage: 650 MG QWEEK IV
     Route: 042
     Dates: start: 20091026, end: 20091026
  2. RITUXIMAB [Suspect]
     Indication: IDIOPATHIC THROMBOCYTOPENIC PURPURA
     Dosage: 650 MG QWEEK IV
     Route: 042
     Dates: start: 20091026, end: 20091026

REACTIONS (7)
  - BLOOD PRESSURE DECREASED [None]
  - CHILLS [None]
  - COLD SWEAT [None]
  - DIZZINESS [None]
  - NAUSEA [None]
  - NEUROPATHY PERIPHERAL [None]
  - VOMITING [None]
